FAERS Safety Report 21989118 (Version 1)
Quarter: 2023Q1

REPORT INFORMATION
  Report Type: Report from Study
  Country: US (occurrence: US)
  Receive Date: 20230214
  Receipt Date: 20230214
  Transmission Date: 20230418
  Serious: No
  Sender: FDA-Public Use
  Company Number: US-002147023-NVSC2023US030549

PATIENT
  Sex: Female

DRUGS (1)
  1. ARZERRA [Suspect]
     Active Substance: OFATUMUMAB
     Indication: Product used for unknown indication
     Dosage: 120 MG, ONCE/SINGLE
     Route: 042
     Dates: start: 20230130

REACTIONS (3)
  - Erythema [Unknown]
  - Tachycardia [Unknown]
  - Cough [Unknown]
